FAERS Safety Report 4637911-8 (Version None)
Quarter: 2005Q2

REPORT INFORMATION
  Report Type: 
  Country: None (occurrence: None)
  Receive Date: 20050325
  Receipt Date: 20041201
  Transmission Date: 20051028
  Serious: No
  Sender: FDA-Public Use
  Company Number: USA041285021

PATIENT
  Age: 77 Year
  Sex: Female
  Weight: 54 kg

DRUGS (9)
  1. FORTEO [Suspect]
     Indication: OSTEOPOROSIS
     Dosage: 20 UG / 1 DAY
     Dates: start: 20040701
  2. SYNTHROID [Concomitant]
  3. DIOVAN [Concomitant]
  4. TOPROL-XL [Concomitant]
  5. DYNACIRC [Concomitant]
  6. CENTRUM [Concomitant]
  7. CITRACAL + D [Concomitant]
  8. VIT C TAB [Concomitant]
  9. GLUCOSAMINE [Concomitant]

REACTIONS (1)
  - ABDOMINAL DISTENSION [None]
